FAERS Safety Report 10955357 (Version 5)
Quarter: 2015Q2

REPORT INFORMATION
  Report Type: Spontaneous
  Country: JP (occurrence: JP)
  Receive Date: 20150326
  Receipt Date: 20150423
  Transmission Date: 20150821
  Serious: Yes (Other)
  Sender: FDA-Public Use
  Company Number: JP-009507513-1503JPN009894

PATIENT
  Age: 87 Year
  Sex: Male
  Weight: 57 kg

DRUGS (6)
  1. LANSOPRAZOLE. [Concomitant]
     Active Substance: LANSOPRAZOLE
     Indication: GASTROOESOPHAGEAL REFLUX DISEASE
     Dosage: 15 MG, QD
     Route: 048
     Dates: start: 20101124, end: 20150306
  2. OLMETEC [Concomitant]
     Active Substance: OLMESARTAN MEDOXOMIL
     Indication: HYPERTENSION
     Dosage: 20 MG, QD
     Route: 048
     Dates: start: 20071003, end: 20150306
  3. AMLODIPINE [Concomitant]
     Active Substance: AMLODIPINE BESYLATE
     Indication: HYPERTENSION
     Dosage: 5 MG, QD
     Route: 048
     Dates: start: 20070523, end: 20150306
  4. CRESTOR [Concomitant]
     Active Substance: ROSUVASTATIN CALCIUM
     Dosage: 2.5 MG, QD
     Route: 048
     Dates: start: 20110913, end: 20150306
  5. NITOROL-R [Concomitant]
     Indication: MYOCARDIAL ISCHAEMIA
     Dosage: 20 MG, BID
     Route: 048
     Dates: start: 20050114, end: 20150306
  6. BELSOMRA [Suspect]
     Active Substance: SUVOREXANT
     Indication: INSOMNIA
     Dosage: 15 MG, QD
     Route: 048
     Dates: start: 20150304, end: 20150306

REACTIONS (3)
  - Carotid artery stenosis [Unknown]
  - Loss of consciousness [Recovered/Resolved]
  - Cerebral infarction [Unknown]

NARRATIVE: CASE EVENT DATE: 20150306
